FAERS Safety Report 15150146 (Version 1)
Quarter: 2018Q3

REPORT INFORMATION
  Report Type: Spontaneous
  Country: FR (occurrence: FR)
  Receive Date: 20180716
  Receipt Date: 20180716
  Transmission Date: 20181010
  Serious: Yes (Death, Life-Threatening)
  Sender: FDA-Public Use
  Company Number: FR-FRESENIUS KABI-FK201807852

PATIENT
  Age: 80 Year
  Sex: Male

DRUGS (3)
  1. PONATINIB [Suspect]
     Active Substance: PONATINIB
     Indication: ACUTE MYELOID LEUKAEMIA RECURRENT
     Dosage: D1 TO D9: 45 MG/DAY AT NOON
     Route: 065
  2. AZITHROMYCIN (MANUFACTURER UNKNOWN) [Suspect]
     Active Substance: AZITHROMYCIN ANHYDROUS
     Indication: RESPIRATORY TRACT INFECTION
     Dosage: D2: 500 MG/DAY, D3: 250 MG/DAY, D4 TO D9: 250 MG/DAY
     Route: 065
  3. VORICONAZOLE (MANUFACTURER UNKNOWN) [Suspect]
     Active Substance: VORICONAZOLE
     Indication: BRONCHOPULMONARY ASPERGILLOSIS
     Dosage: D3: 400 MG/DAY AT NIGHT, D4 TO D7: 400 MG MORNING?NIGHT, D8: 400 MG MORNING, 200 MG NIGHT, D9: 200 M
     Route: 065

REACTIONS (4)
  - Drug interaction [Fatal]
  - Hepatocellular injury [Unknown]
  - Acute hepatic failure [Unknown]
  - Hepatic failure [Fatal]
